FAERS Safety Report 4561096-X (Version None)
Quarter: 2005Q1

REPORT INFORMATION
  Report Type: 
  Country: None (occurrence: None)
  Receive Date: 20050121
  Receipt Date: 20050105
  Transmission Date: 20050727
  Serious: Yes (Hospitalization)
  Sender: FDA-Public Use
  Company Number: 8008507

PATIENT
  Age: 1 Month
  Sex: Female

DRUGS (1)
  1. THEOPHYLLINE [Suspect]
     Indication: BRONCHIOLITIS

REACTIONS (7)
  - BRONCHIOLITIS [None]
  - CONVULSION [None]
  - IRRITABILITY [None]
  - OVERDOSE [None]
  - TACHYCARDIA [None]
  - TACHYPNOEA [None]
  - TREMOR [None]
